FAERS Safety Report 16935064 (Version 3)
Quarter: 2021Q1

REPORT INFORMATION
  Report Type: Spontaneous
  Country: US (occurrence: US)
  Receive Date: 20191018
  Receipt Date: 20210218
  Transmission Date: 20210419
  Serious: No
  Sender: FDA-Public Use
  Company Number: US-PFIZER INC-2019036660

PATIENT
  Age: 44 Year
  Sex: Female

DRUGS (2)
  1. SOMAVERT [Suspect]
     Active Substance: PEGVISOMANT
     Dosage: 10 MG, TWICE WEEKLY (SOMAVERT 10MG 2 DAYS A WEEK, MON THURS OR TUESDAY, FRIDAY)
  2. SOMAVERT [Suspect]
     Active Substance: PEGVISOMANT
     Dosage: 20 MG, 2X/WEEK (20MG SQ 2X A WEEK)
     Route: 058
     Dates: start: 20190920

REACTIONS (2)
  - Off label use [Unknown]
  - Insulin-like growth factor increased [Unknown]

NARRATIVE: CASE EVENT DATE: 20190927
